FAERS Safety Report 5958851-8 (Version None)
Quarter: 2008Q4

REPORT INFORMATION
  Report Type: 
  Country: None (occurrence: None)
  Receive Date: 20081119
  Receipt Date: 20070306
  Transmission Date: 20090506
  Serious: Yes (Hospitalization)
  Sender: FDA-Public Use
  Company Number: NZ-GENENTECH-236785

PATIENT
  Sex: Female

DRUGS (1)
  1. PULMOZYME [Suspect]
     Indication: CYSTIC FIBROSIS
     Dosage: UNK
     Dates: start: 20061219, end: 20070211

REACTIONS (5)
  - CHEST DISCOMFORT [None]
  - COUGH [None]
  - DYSPNOEA [None]
  - MALAISE [None]
  - PYREXIA [None]
